FAERS Safety Report 14935118 (Version 1)
Quarter: 2018Q2

REPORT INFORMATION
  Report Type: Spontaneous
  Country: US (occurrence: US)
  Receive Date: 20180506
  Receipt Date: 20180506
  Transmission Date: 20180711
  Serious: Yes (Other)
  Sender: FDA-Public Use
  Company Number: None

PATIENT
  Age: 56 Year
  Sex: Female
  Weight: 62.1 kg

DRUGS (1)
  1. ALENDRONATE SODIUM. [Suspect]
     Active Substance: ALENDRONATE SODIUM
     Indication: BONE LOSS
     Dosage: ?          QUANTITY:4 DF DOSAGE FORM;OTHER FREQUENCY:WEEKLY;?
     Route: 048
     Dates: start: 20180422, end: 20180429

REACTIONS (6)
  - Pain [None]
  - Chest pain [None]
  - Gastrooesophageal reflux disease [None]
  - Pain in jaw [None]
  - Cough [None]
  - Muscle spasms [None]

NARRATIVE: CASE EVENT DATE: 20180501
